FAERS Safety Report 9369923 (Version 1)
Quarter: 2013Q2

REPORT INFORMATION
  Report Type: Spontaneous
  Country: US (occurrence: None)
  Receive Date: 20130625
  Receipt Date: 20130625
  Transmission Date: 20140414
  Serious: Yes (Other)
  Sender: FDA-Public Use
  Company Number: None

PATIENT
  Sex: Female

DRUGS (1)
  1. ROC RETINOL [Suspect]

REACTIONS (3)
  - Asthma [None]
  - Accidental exposure to product [None]
  - Product odour abnormal [None]
